FAERS Safety Report 19196460 (Version 2)
Quarter: 2021Q4

REPORT INFORMATION
  Report Type: Spontaneous
  Country: US (occurrence: US)
  Receive Date: 20210429
  Receipt Date: 20211011
  Transmission Date: 20220303
  Serious: Yes (Death, Other)
  Sender: FDA-Public Use
  Company Number: 2021A362428

PATIENT
  Age: 819 Month
  Sex: Male
  Weight: 54.4 kg

DRUGS (40)
  1. NEXIUM [Suspect]
     Active Substance: ESOMEPRAZOLE MAGNESIUM
     Indication: Dyspepsia
     Dosage: FOR VARIOUS DATES AND YEARS
     Route: 048
  2. NEXIUM [Suspect]
     Active Substance: ESOMEPRAZOLE MAGNESIUM
     Indication: Gastrooesophageal reflux disease
     Dosage: FOR VARIOUS DATES AND YEARS
     Route: 048
  3. NEXIUM [Suspect]
     Active Substance: ESOMEPRAZOLE MAGNESIUM
     Indication: Dyspepsia
     Route: 048
     Dates: start: 2009, end: 2013
  4. NEXIUM [Suspect]
     Active Substance: ESOMEPRAZOLE MAGNESIUM
     Indication: Gastrooesophageal reflux disease
     Route: 048
     Dates: start: 2009, end: 2013
  5. NEXIUM 24HR [Suspect]
     Active Substance: ESOMEPRAZOLE MAGNESIUM
     Indication: Dyspepsia
     Route: 048
     Dates: start: 2014, end: 2017
  6. NEXIUM 24HR [Suspect]
     Active Substance: ESOMEPRAZOLE MAGNESIUM
     Indication: Gastrooesophageal reflux disease
     Route: 048
     Dates: start: 2014, end: 2017
  7. OMEPRAZOLE [Suspect]
     Active Substance: OMEPRAZOLE
     Indication: Dyspepsia
     Route: 065
     Dates: start: 2017, end: 2019
  8. OMEPRAZOLE [Suspect]
     Active Substance: OMEPRAZOLE
     Indication: Gastrooesophageal reflux disease
     Route: 065
     Dates: start: 2017, end: 2019
  9. CIPROFLOXACIN [Concomitant]
     Active Substance: CIPROFLOXACIN
     Indication: Infection
     Dates: start: 2011
  10. CIPROFLOXACIN [Concomitant]
     Active Substance: CIPROFLOXACIN
     Indication: Infection
     Dates: start: 2014
  11. CIPROFLOXACIN [Concomitant]
     Active Substance: CIPROFLOXACIN
     Indication: Infection
     Dates: start: 2018
  12. ACYCLOVIR [Concomitant]
     Active Substance: ACYCLOVIR
     Indication: Infection
     Dates: start: 2010
  13. SIMVASTATIN [Concomitant]
     Active Substance: SIMVASTATIN
     Indication: Blood cholesterol increased
     Dates: start: 2009
  14. SIMVASTATIN [Concomitant]
     Active Substance: SIMVASTATIN
     Indication: Blood cholesterol increased
     Dates: start: 2013, end: 2014
  15. INDOMETHACIN [Concomitant]
     Active Substance: INDOMETHACIN
     Indication: Pain
     Dates: start: 2014, end: 2017
  16. LISINOPRIL [Concomitant]
     Active Substance: LISINOPRIL
     Indication: Hypertension
     Dates: start: 2009
  17. LISINOPRIL [Concomitant]
     Active Substance: LISINOPRIL
     Indication: Hypertension
     Dates: start: 2014, end: 2016
  18. ACETAMINOPHEN [Concomitant]
     Active Substance: ACETAMINOPHEN
     Indication: Pyrexia
     Dates: start: 2000, end: 2018
  19. TYLENOL [Concomitant]
     Active Substance: ACETAMINOPHEN
     Indication: Pyrexia
     Dates: start: 2000, end: 2018
  20. ASPIRIN [Concomitant]
     Active Substance: ASPIRIN
     Indication: Cardiac disorder
     Dates: start: 2000, end: 2018
  21. VITAMIN D [Concomitant]
     Active Substance: VITAMIN D NOS
     Indication: Hypovitaminosis
     Dates: start: 2000, end: 2017
  22. MAGNESIUM OXIDE [Concomitant]
     Active Substance: MAGNESIUM OXIDE
     Indication: Hypovitaminosis
     Dates: start: 2018
  23. PEPCID [Concomitant]
     Active Substance: FAMOTIDINE
     Dates: start: 2009, end: 2017
  24. TUMS [Concomitant]
     Active Substance: CALCIUM CARBONATE
     Dates: start: 2000, end: 2017
  25. MILK OF MAGNESIA [Concomitant]
     Active Substance: MAGNESIUM HYDROXIDE
     Dates: start: 2000, end: 2017
  26. MYLANTA [Concomitant]
     Active Substance: ALUMINUM HYDROXIDE\DIMETHICONE\MAGNESIUM HYDROXIDE
     Dates: start: 2000, end: 2017
  27. ACCOLATE [Concomitant]
     Active Substance: ZAFIRLUKAST
  28. COLCHICINE [Concomitant]
     Active Substance: COLCHICINE
  29. PROAIR HFA [Concomitant]
     Active Substance: ALBUTEROL SULFATE
  30. VIAGRA [Concomitant]
     Active Substance: SILDENAFIL CITRATE
  31. METFORMIN HYDROCHLORIDE [Concomitant]
     Active Substance: METFORMIN HYDROCHLORIDE
  32. ZAFIRLUKAST [Concomitant]
     Active Substance: ZAFIRLUKAST
  33. ALLOPURINOL [Concomitant]
     Active Substance: ALLOPURINOL
  34. COLCRYS [Concomitant]
     Active Substance: COLCHICINE
  35. TAMSULOSIN HYDROCHLORIDE [Concomitant]
     Active Substance: TAMSULOSIN HYDROCHLORIDE
  36. ADVAIR DISKUS [Concomitant]
     Active Substance: FLUTICASONE PROPIONATE\SALMETEROL XINAFOATE
  37. LACTULOSE [Concomitant]
     Active Substance: LACTULOSE
  38. ONDANSETRON HYDROCHLORIDE [Concomitant]
     Active Substance: ONDANSETRON HYDROCHLORIDE
  39. NEULASTA [Concomitant]
     Active Substance: PEGFILGRASTIM
  40. DEXAMETHASONE [Concomitant]
     Active Substance: DEXAMETHASONE

REACTIONS (3)
  - Death [Fatal]
  - Pancreatic carcinoma [Unknown]
  - Rebound acid hypersecretion [Unknown]

NARRATIVE: CASE EVENT DATE: 20170701
